FAERS Safety Report 13797861 (Version 3)
Quarter: 2018Q2

REPORT INFORMATION
  Report Type: Report from Study
  Country: None (occurrence: US)
  Receive Date: 20170727
  Receipt Date: 20180620
  Transmission Date: 20180711
  Serious: Yes (Other)
  Sender: FDA-Public Use
  Company Number: US-ABBVIE-17K-163-2049613-00

PATIENT
  Age: 51 Year
  Sex: Male

DRUGS (1)
  1. HUMIRA [Suspect]
     Active Substance: ADALIMUMAB
     Indication: PSORIASIS
     Route: 058

REACTIONS (9)
  - Rash pruritic [Unknown]
  - Road traffic accident [Unknown]
  - Abdominal pain upper [Unknown]
  - Lymph gland infection [Unknown]
  - Craniocerebral injury [Unknown]
  - Intervertebral disc protrusion [Unknown]
  - Neck injury [Unknown]
  - Depression [Not Recovered/Not Resolved]
  - Rash papular [Unknown]

NARRATIVE: CASE EVENT DATE: 201606
